FAERS Safety Report 4879574-2 (Version None)
Quarter: 2006Q1

REPORT INFORMATION
  Report Type: 
  Country: None (occurrence: None)
  Receive Date: 20060111
  Receipt Date: 20051227
  Transmission Date: 20060701
  Serious: Yes (Hospitalization)
  Sender: FDA-Public Use
  Company Number: DSA_27598_2005

PATIENT
  Age: 56 Year
  Sex: Female

DRUGS (4)
  1. LORAZEPAM [Suspect]
     Dosage: 3 MG ONCE PO
     Route: 048
     Dates: start: 20051226, end: 20051226
  2. ENALAPRIL [Suspect]
     Dosage: 100 MG ONCE PO
     Route: 048
     Dates: start: 20051226, end: 20051226
  3. BISOPROLOL FUMARATE [Suspect]
     Dosage: 100 MG ONCE PO
     Route: 048
     Dates: start: 20051226, end: 20051226
  4. DOXEPIN [Suspect]
     Dosage: 100 MG ONCE PO
     Route: 048
     Dates: start: 20051226, end: 20051226

REACTIONS (4)
  - BRADYCARDIA [None]
  - HYPOTENSION [None]
  - MULTIPLE DRUG OVERDOSE INTENTIONAL [None]
  - SUICIDE ATTEMPT [None]
